FAERS Safety Report 11005760 (Version 1)
Quarter: 2015Q2

REPORT INFORMATION
  Report Type: Spontaneous
  Country: JP (occurrence: JP)
  Receive Date: 20150409
  Receipt Date: 20150409
  Transmission Date: 20150821
  Serious: Yes (Death)
  Sender: FDA-Public Use
  Company Number: JP-BAYER-2014-131883

PATIENT
  Sex: Female

DRUGS (4)
  1. NEXAVAR [Suspect]
     Active Substance: SORAFENIB
     Indication: HEPATOCELLULAR CARCINOMA
     Dosage: DAILY DOSE 200 MG
     Route: 048
     Dates: start: 20140715, end: 20140807
  2. NEXAVAR [Suspect]
     Active Substance: SORAFENIB
     Indication: HEPATOCELLULAR CARCINOMA
     Dosage: DAILY DOSE 400 MG
     Route: 048
     Dates: start: 20140502, end: 20140714
  3. NEXAVAR [Suspect]
     Active Substance: SORAFENIB
     Indication: HEPATOCELLULAR CARCINOMA
     Dosage: 200MG
     Route: 048
     Dates: start: 20140904, end: 20141030
  4. NEXAVAR [Suspect]
     Active Substance: SORAFENIB
     Indication: HEPATOCELLULAR CARCINOMA
     Dosage: DAILY DOSE 400 MG
     Route: 048
     Dates: start: 20140808, end: 20140903

REACTIONS (10)
  - Hypoacusis [Not Recovered/Not Resolved]
  - Palmar-plantar erythrodysaesthesia syndrome [Recovered/Resolved]
  - Alopecia [Not Recovered/Not Resolved]
  - Hepatocellular carcinoma [Fatal]
  - Dysphonia [Recovering/Resolving]
  - Tinnitus [Recovering/Resolving]
  - Diarrhoea [Recovering/Resolving]
  - Hypertension [Recovering/Resolving]
  - Gastroenteritis [Recovering/Resolving]
  - Nasal congestion [Recovering/Resolving]

NARRATIVE: CASE EVENT DATE: 20140523
